FAERS Safety Report 7043936-8 (Version None)
Quarter: 2010Q4

REPORT INFORMATION
  Report Type: 
  Country: None (occurrence: None)
  Receive Date: 20101008
  Receipt Date: 20101008
  Transmission Date: 20110411
  Serious: Yes (Death, Life-Threatening, Hospitalization)
  Sender: FDA-Public Use
  Company Number: None

PATIENT
  Sex: Male
  Weight: 75 kg

DRUGS (1)
  1. AVELOX [Suspect]
     Indication: PNEUMONIA
     Dosage: 400MG ONE PILL PER 24HRS PO
     Route: 048
     Dates: start: 20100831, end: 20100902

REACTIONS (10)
  - ACUTE HEPATIC FAILURE [None]
  - CARDIAC ARREST [None]
  - CHEST PAIN [None]
  - FUNGAL TEST POSITIVE [None]
  - HEPATITIS [None]
  - MULTI-ORGAN FAILURE [None]
  - PLATELET COUNT DECREASED [None]
  - PNEUMONITIS [None]
  - RENAL FAILURE ACUTE [None]
  - SEPTIC SHOCK [None]
